FAERS Safety Report 17924495 (Version 1)
Quarter: 2020Q2

REPORT INFORMATION
  Report Type: Other
  Country: US (occurrence: US)
  Receive Date: 20200622
  Receipt Date: 20200622
  Transmission Date: 20200714
  Serious: No
  Sender: FDA-Public Use
  Company Number: US-ACORDA-ACO_164427_2020

PATIENT
  Sex: Female

DRUGS (4)
  1. INBRIJA [Suspect]
     Active Substance: LEVODOPA
     Indication: PARKINSON^S DISEASE
     Dosage: 84 MILLIGRAM, PRN, NOT TO EXCEED 5 DOSES A DAY
     Dates: start: 202002
  2. INBRIJA [Suspect]
     Active Substance: LEVODOPA
     Indication: ON AND OFF PHENOMENON
  3. CARBIDOPA AND LEVODOPA [Concomitant]
     Active Substance: CARBIDOPA\LEVODOPA
     Indication: PRODUCT USED FOR UNKNOWN INDICATION
     Dosage: 25/100 MG 1 TAB 4 OR 5 X/DA
     Route: 065
  4. CARBIDOPA AND LEVODOPA [Concomitant]
     Active Substance: CARBIDOPA\LEVODOPA
     Dosage: ER 25/100 1 TAB 3 OR 4 X/DAY
     Route: 065

REACTIONS (4)
  - Incorrect dose administered by device [Unknown]
  - Device difficult to use [Unknown]
  - Device issue [Unknown]
  - Cough [Unknown]
